FAERS Safety Report 6703209-7 (Version None)
Quarter: 2010Q2

REPORT INFORMATION
  Report Type: 
  Country: None (occurrence: None)
  Receive Date: 20100430
  Receipt Date: 20100416
  Transmission Date: 20101027
  Serious: Yes (Hospitalization)
  Sender: FDA-Public Use
  Company Number: US-RANBAXY-2010US-33239

PATIENT

DRUGS (20)
  1. GANCICLOVIR [Suspect]
     Indication: ANTIVIRAL PROPHYLAXIS
     Dosage: 1000 MG, 3 IN 1 D
     Route: 048
     Dates: start: 20080915, end: 20081222
  2. MARIBAVIR PLACEBO [Suspect]
     Indication: ANTIVIRAL PROPHYLAXIS
     Dosage: 100 MG, 2 IN 1 D
     Route: 048
     Dates: start: 20080915, end: 20081222
  3. ACYCLOVIR PLACEBO [Suspect]
     Indication: ANTIVIRAL PROPHYLAXIS
     Dosage: 400 MG, 2 IN 1 D
     Route: 048
     Dates: start: 20080915, end: 20081222
  4. BASILIXIMAB [Concomitant]
     Indication: PROPHYLAXIS AGAINST TRANSPLANT REJECTION
     Route: 065
  5. CALCIUM CARBONATE [Concomitant]
     Indication: HYPOCALCAEMIA
     Route: 065
  6. FENTANYL CITRATE [Concomitant]
     Indication: PROCEDURAL PAIN
     Route: 065
  7. REGULAR INSULIN [Concomitant]
     Indication: DIABETES MELLITUS
     Route: 065
  8. MAGNESIUM SULFATE [Concomitant]
     Indication: HYPOMAGNESAEMIA
     Route: 065
  9. METHYL PREDNISOLONE [Concomitant]
     Indication: PROPHYLAXIS AGAINST TRANSPLANT REJECTION
  10. MYCOPENOLATE MOFETIL [Concomitant]
     Indication: PROPHYLAXIS AGAINST TRANSPLANT REJECTION
     Route: 065
  11. NYSTATIN [Concomitant]
     Indication: ORAL CANDIDIASIS
     Route: 065
  12. SILVER SULFADIAZINE [Concomitant]
     Indication: CELLULITIS
     Route: 065
  13. SODIUM BICARBONATE [Concomitant]
     Indication: ACIDOSIS
     Route: 065
  14. TACROLIMUS [Concomitant]
     Indication: PROPHYLAXIS AGAINST TRANSPLANT REJECTION
     Route: 065
  15. BACTRIM [Concomitant]
     Indication: ANTIFUNGAL PROPHYLAXIS
     Route: 065
  16. NPH INSULIN [Concomitant]
     Indication: DIABETES MELLITUS
     Route: 065
  17. ASPIRIN [Concomitant]
     Indication: CARDIOVASCULAR EVENT PROPHYLAXIS
     Route: 065
  18. INSULIN ASPART [Concomitant]
     Indication: DIABETES MELLITUS
     Route: 065
  19. FAMOTIDINE [Concomitant]
     Indication: DRUG USE FOR UNKNOWN INDICATION
     Route: 065
  20. FUROSEMIDE [Concomitant]
     Indication: FLUID RETENTION
     Route: 065

REACTIONS (2)
  - CELLULITIS [None]
  - GASTROENTERITIS VIRAL [None]
